FAERS Safety Report 4712921-0 (Version None)
Quarter: 2005Q3

REPORT INFORMATION
  Report Type: 
  Country: None (occurrence: None)
  Receive Date: 20050713
  Receipt Date: 20050614
  Transmission Date: 20060218
  Serious: Yes (Hospitalization, Disabling)
  Sender: FDA-Public Use
  Company Number: JP-BRISTOL-MYERS SQUIBB COMPANY-13003421

PATIENT
  Age: 51 Year
  Sex: Female

DRUGS (7)
  1. TAXOL [Suspect]
     Indication: BREAST CANCER
     Route: 042
     Dates: start: 20050430, end: 20050430
  2. PAMIDRONATE DISODIUM [Suspect]
     Indication: METASTASES TO BONE
     Route: 042
     Dates: start: 20050507, end: 20050507
  3. NIZATIDINE [Concomitant]
  4. CARMELLOSE SODIUM [Concomitant]
  5. MAGNESIUM OXIDE [Concomitant]
  6. CODEINE PHOSPHATE [Concomitant]
  7. TIZANIDINE HCL [Concomitant]

REACTIONS (1)
  - MENINGITIS NONINFECTIVE [None]
